FAERS Safety Report 7072699-5 (Version None)
Quarter: 2010Q4

REPORT INFORMATION
  Report Type: 
  Country: None (occurrence: None)
  Receive Date: 20101029
  Receipt Date: 20101022
  Transmission Date: 20110411
  Serious: Yes (Other)
  Sender: FDA-Public Use
  Company Number: BR-SANOFI-AVENTIS-2010SA064921

PATIENT
  Age: 34 Year
  Sex: Female
  Weight: 168 kg

DRUGS (9)
  1. LANTUS [Suspect]
     Route: 058
     Dates: start: 20101016
  2. LANTUS [Suspect]
     Indication: GESTATIONAL DIABETES
     Route: 058
     Dates: start: 20101016
  3. SOLOSTAR [Suspect]
     Dates: start: 20101016
  4. APIDRA SOLOSTAR [Suspect]
  5. APIDRA SOLOSTAR [Suspect]
     Indication: GESTATIONAL DIABETES
  6. SOLOSTAR [Suspect]
     Dates: start: 20101016
  7. FOLIC ACID [Concomitant]
     Indication: PREGNANCY
     Route: 048
  8. MECLIZINE HYDROCHLORIDE [Concomitant]
     Route: 048
  9. SYNTHROID [Concomitant]
     Indication: THYROIDITIS
     Route: 048

REACTIONS (5)
  - DRUG EXPOSURE DURING PREGNANCY [None]
  - INJECTION SITE HAEMORRHAGE [None]
  - PLACENTA PRAEVIA [None]
  - VAGINAL DISCHARGE [None]
  - VAGINAL HAEMORRHAGE [None]
